FAERS Safety Report 9735702 (Version 1)
Quarter: 2013Q4

REPORT INFORMATION
  Report Type: Report from Study
  Country: US (occurrence: US)
  Receive Date: 20131206
  Receipt Date: 20131206
  Transmission Date: 20140711
  Serious: No
  Sender: FDA-Public Use
  Company Number: PHEH2013US025250

PATIENT
  Age: 77 Year
  Sex: Male

DRUGS (16)
  1. TASIGNA [Suspect]
     Indication: MYELODYSPLASTIC SYNDROME
     Dosage: 300 MG, BID
     Route: 048
     Dates: start: 20131112
  2. TASIGNA [Suspect]
     Indication: OFF LABEL USE
  3. MIRALAX [Concomitant]
     Dosage: UNK UKN, UNK
  4. CULTURELLE [Concomitant]
     Dosage: UNK UKN, UNK
  5. BENEFIBER [Concomitant]
     Dosage: UNK UKN, UNK
  6. TUMS [Concomitant]
     Dosage: UNK UKN, UNK
  7. SULINDAC [Concomitant]
     Dosage: UNK UKN, UNK
  8. SIMVASTATIN [Concomitant]
     Dosage: UNK UKN, UNK
  9. PROCHLORPERAZINE [Concomitant]
     Dosage: UNK UKN, UNK
  10. OMEPRAZOLE [Concomitant]
     Dosage: UNK UKN, UNK
  11. FISH OIL [Concomitant]
     Dosage: UNK UKN, UNK
  12. BENICAR [Concomitant]
     Dosage: UNK UKN, UNK
  13. AMITIZA [Concomitant]
     Dosage: UNK UKN, UNK
  14. CHOLECALCIFEROL [Concomitant]
     Dosage: UNK UKN, UNK
  15. DIPHENHYDRAMINE [Concomitant]
     Dosage: UNK UKN, UNK
  16. COLACE [Concomitant]
     Dosage: UNK UKN, UNK

REACTIONS (2)
  - Fatigue [Not Recovered/Not Resolved]
  - Blood pressure decreased [Not Recovered/Not Resolved]
